FAERS Safety Report 5508810-4 (Version None)
Quarter: 2007Q4

REPORT INFORMATION
  Report Type: 
  Country: None (occurrence: None)
  Receive Date: 20071107
  Receipt Date: 20071102
  Transmission Date: 20080405
  Serious: Yes (Other)
  Sender: FDA-Public Use
  Company Number: CN-JNJFOC-20071007807

PATIENT
  Age: 13 Month
  Sex: Male
  Weight: 12 kg

DRUGS (2)
  1. TYLENOL (CAPLET) [Suspect]
  2. TYLENOL (CAPLET) [Suspect]
     Indication: PYREXIA
     Dosage: 150 MG X 6 DOSES

REACTIONS (1)
  - WHITE BLOOD CELL COUNT DECREASED [None]
